FAERS Safety Report 6131438-2 (Version None)
Quarter: 2009Q1

REPORT INFORMATION
  Report Type: 
  Country: None (occurrence: None)
  Receive Date: 20090325
  Receipt Date: 20080722
  Transmission Date: 20090719
  Serious: Yes (Life-Threatening)
  Sender: FDA-Public Use
  Company Number: US-BRISTOL-MYERS SQUIBB COMPANY-14246995

PATIENT
  Sex: Female

DRUGS (4)
  1. ERBITUX [Suspect]
     Indication: COLORECTAL CANCER METASTATIC
     Route: 042
     Dates: start: 20080701
  2. LISINOPRIL [Concomitant]
  3. COUMADIN [Concomitant]
  4. TOPROL-XL [Concomitant]

REACTIONS (1)
  - HYPERSENSITIVITY [None]
